FAERS Safety Report 6182819-2 (Version None)
Quarter: 2009Q2

REPORT INFORMATION
  Report Type: 
  Country: None (occurrence: None)
  Receive Date: 20090505
  Receipt Date: 20090421
  Transmission Date: 20091009
  Serious: Yes (Death)
  Sender: FDA-Public Use
  Company Number: 2009001214

PATIENT

DRUGS (1)
  1. ERLOTINIB(ERLOTINIB) (TABLET) (ERLOTINIB) [Suspect]
     Indication: NON-SMALL CELL LUNG CANCER
     Dosage: (QD),ORAL
     Route: 048
     Dates: start: 20090107, end: 20090410

REACTIONS (1)
  - ACUTE RESPIRATORY FAILURE [None]
